FAERS Safety Report 12321721 (Version 1)
Quarter: 2016Q2

REPORT INFORMATION
  Report Type: Spontaneous
  Country: US (occurrence: US)
  Receive Date: 20160502
  Receipt Date: 20160502
  Transmission Date: 20160815
  Serious: Yes (Hospitalization)
  Sender: FDA-Public Use
  Company Number: US-SA-2016SA084246

PATIENT
  Age: 42 Year
  Sex: Female

DRUGS (18)
  1. HYDROMORPHONE [Concomitant]
     Active Substance: HYDROMORPHONE
  2. METHYLPREDNISOLONE. [Concomitant]
     Active Substance: METHYLPREDNISOLONE
  3. MYCOPHENOLATE MOFETIL. [Concomitant]
     Active Substance: MYCOPHENOLATE MOFETIL
  4. ESCITALOPRAM [Concomitant]
     Active Substance: ESCITALOPRAM OXALATE
  5. COTRIMOXAZOLE [Concomitant]
     Active Substance: SULFAMETHOXAZOLE\TRIMETHOPRIM
  6. HEPARIN [Concomitant]
     Active Substance: HEPARIN SODIUM
  7. PREDNISONE. [Concomitant]
     Active Substance: PREDNISONE
  8. OXYCODONE [Concomitant]
     Active Substance: OXYCODONE
  9. DOCUSATE [Concomitant]
     Active Substance: DOCUSATE
  10. THYMOGLOBULINE [Suspect]
     Active Substance: LAPINE T-LYMPHOCYTE IMMUNE GLOBULIN
     Indication: IMMUNOSUPPRESSION
     Route: 065
  11. LEVETIRACETAM. [Concomitant]
     Active Substance: LEVETIRACETAM
  12. RANITIDINE. [Concomitant]
     Active Substance: RANITIDINE
  13. CEFAZOLIN [Concomitant]
     Active Substance: CEFAZOLIN
  14. VALGANCICLOVIR. [Concomitant]
     Active Substance: VALGANCICLOVIR
  15. TACROLIMUS. [Concomitant]
     Active Substance: TACROLIMUS
  16. CARISOPRODOL. [Concomitant]
     Active Substance: CARISOPRODOL
  17. CLOTRIMAZOLE. [Concomitant]
     Active Substance: CLOTRIMAZOLE
  18. SENNA [Concomitant]
     Active Substance: SENNA LEAF\SENNOSIDES\SENNOSIDES A AND B

REACTIONS (1)
  - Thrombotic microangiopathy [Recovered/Resolved]
